FAERS Safety Report 6730861-2 (Version None)
Quarter: 2010Q2

REPORT INFORMATION
  Report Type: 
  Country: None (occurrence: None)
  Receive Date: 20100518
  Receipt Date: 20100505
  Transmission Date: 20101027
  Serious: Yes (Hospitalization)
  Sender: FDA-Public Use
  Company Number: PHHY2010AT29437

PATIENT
  Age: 51 Year
  Sex: Male
  Weight: 86 kg

DRUGS (7)
  1. TEGRETOL [Suspect]
     Dosage: 200 MG, DAILY
     Dates: start: 20090604, end: 20090604
  2. TEGRETOL [Suspect]
     Dosage: 400 MG, DAILY
     Dates: start: 20090605, end: 20090608
  3. ZYPREXA [Suspect]
     Dosage: 30 MG, DAILY
     Dates: start: 20090527
  4. LORAZEPAM [Concomitant]
     Dosage: 7.5 MG, DAILY
     Dates: start: 20090527
  5. SELOKEN [Concomitant]
     Dosage: 47.5 MG, DAILY
     Dates: start: 20090528
  6. QUILONORM RETARD [Concomitant]
     Dosage: 900 MG, DAILY
     Dates: start: 20090609
  7. AMITRIPTYLINE HYDROCHLORIDE [Concomitant]
     Dosage: 25 MG, DAILY
     Dates: start: 20090527

REACTIONS (6)
  - ALANINE AMINOTRANSFERASE INCREASED [None]
  - ASPARTATE AMINOTRANSFERASE INCREASED [None]
  - BLOOD ALKALINE PHOSPHATASE INCREASED [None]
  - BLOOD CREATINE PHOSPHOKINASE INCREASED [None]
  - GAMMA-GLUTAMYLTRANSFERASE INCREASED [None]
  - LIVER FUNCTION TEST ABNORMAL [None]
